FAERS Safety Report 9518331 (Version 1)
Quarter: 2013Q1

REPORT INFORMATION
  Report Type: Spontaneous
  Country: US (occurrence: None)
  Receive Date: 20130305
  Receipt Date: 20130305
  Transmission Date: 20140127
  Serious: Yes (Other)
  Sender: FDA-Public Use
  Company Number: 163-21880-12081031

PATIENT
  Age: 64 Year
  Sex: Female
  Weight: 56.7 kg

DRUGS (17)
  1. REVLIMID [Suspect]
     Indication: PLASMA CELL MYELOMA
     Dosage: 10 MG, 21 IN 28 D, PO
     Route: 048
     Dates: start: 20120515
  2. VITAMIN C [Suspect]
  3. VITAMIN D (ERGOCALCIFEROL) (UNKNOWN) [Concomitant]
  4. ADVIL (IBUPROFEN) (UNKNOWN) [Concomitant]
  5. ALOE (ALOES) (UNKNOWN) [Concomitant]
  6. ASPIRIN (ACETYLSALICYLIC ACID) (UNKNOWN) (ACETYLSALICYLIC ACID) [Concomitant]
  7. CALCIUM (CALCIUM) (UNKNOWN) [Concomitant]
  8. CLARITIN (LORATADINE) (UNKNOWN) [Concomitant]
  9. CO Q 10 (UBIDECARENONE) (UNKNOWN) [Concomitant]
  10. FLAXSEED OIL (LINSEED OIL) (UNKNOWN) [Concomitant]
  11. GARLIC (GARLIC) (UNKNOWN) [Concomitant]
  12. LIPITOR (ATORVASTATIN) (UNKNOWN) [Concomitant]
  13. MEDROL (METHYLPREDNISOLONE) (UNKNOWN) [Concomitant]
  14. MULTIVITAMINS (MULTIVITAMINS) (UNKNOWN) [Concomitant]
  15. PROBIOTIC (BIFIDOBACTERIUM LACTIS) (UNKNOWN) [Concomitant]
  16. TUMS (CALCIUM CARBONATE) (UNKNOWN) [Concomitant]
  17. TYLENOL (PARACETAMOL) (UNKNOWN) [Concomitant]

REACTIONS (6)
  - Fatigue [None]
  - Hypoaesthesia [None]
  - Paraesthesia [None]
  - Vision blurred [None]
  - Sinusitis [None]
  - Bronchitis [None]
